FAERS Safety Report 18605040 (Version 1)
Quarter: 2020Q4

REPORT INFORMATION
  Report Type: Spontaneous
  Country: US (occurrence: US)
  Receive Date: 20201211
  Receipt Date: 20201211
  Transmission Date: 20210114
  Serious: Yes (Other)
  Sender: FDA-Public Use
  Company Number: None

PATIENT
  Age: 36 Year
  Sex: Female
  Weight: 82.1 kg

DRUGS (1)
  1. BUDESONIDE-FORMOTEROL [Suspect]
     Active Substance: BUDESONIDE\FORMOTEROL
     Indication: ASTHMA
     Route: 055
     Dates: start: 20190607, end: 20200421

REACTIONS (3)
  - Insomnia [None]
  - Product substitution issue [None]
  - Illness [None]

NARRATIVE: CASE EVENT DATE: 20200421
